FAERS Safety Report 6217125-0 (Version None)
Quarter: 2009Q2

REPORT INFORMATION
  Report Type: 
  Country: None (occurrence: None)
  Receive Date: 20090606
  Receipt Date: 20090525
  Transmission Date: 20091009
  Serious: Yes (Other)
  Sender: FDA-Public Use
  Company Number: JP-PFIZER INC-2009219351

PATIENT
  Age: 0 Day

DRUGS (4)
  1. HALCION [Suspect]
  2. TOLEDOMIN [Suspect]
  3. DEPAS [Suspect]
  4. MEILAX [Suspect]

REACTIONS (5)
  - BLOOD PRESSURE INCREASED [None]
  - DRUG EXPOSURE DURING PREGNANCY [None]
  - DRUG WITHDRAWAL SYNDROME NEONATAL [None]
  - PLATELET COUNT DECREASED [None]
  - SMALL FOR DATES BABY [None]
